FAERS Safety Report 9925676 (Version 3)
Quarter: 2014Q1

REPORT INFORMATION
  Report Type: Spontaneous
  Country: FR (occurrence: FR)
  Receive Date: 20140226
  Receipt Date: 20140331
  Transmission Date: 20141002
  Serious: Yes (Hospitalization)
  Sender: FDA-Public Use
  Company Number: FR-GLAXOSMITHKLINE-B0968056A

PATIENT
  Age: 44 Year
  Sex: Male

DRUGS (3)
  1. TAFINLAR [Suspect]
     Indication: METASTATIC MALIGNANT MELANOMA
     Dosage: 150MG TWICE PER DAY
     Route: 048
     Dates: start: 20140129, end: 20140202
  2. SEROPLEX [Concomitant]
     Indication: DEPRESSION
     Dosage: 10MG PER DAY
     Route: 048
  3. STILNOX [Concomitant]
     Indication: SLEEP DISORDER
     Dosage: 10MG PER DAY
     Route: 048

REACTIONS (2)
  - Arthritis [Unknown]
  - Pyrexia [Recovered/Resolved]
